FAERS Safety Report 15920478 (Version 3)
Quarter: 2019Q2

REPORT INFORMATION
  Report Type: Spontaneous
  Country: US (occurrence: US)
  Receive Date: 20190205
  Receipt Date: 20190425
  Transmission Date: 20190711
  Serious: Yes (Other)
  Sender: FDA-Public Use
  Company Number: US-ASTRAZENECA-2018SF13784

PATIENT
  Age: 20979 Day
  Sex: Male
  Weight: 93 kg

DRUGS (16)
  1. TUMS [Concomitant]
     Active Substance: CALCIUM CARBONATE
     Dosage: 500 MG 3 TIMES A DAY WITH MEALS
  2. ALLOPURINOL. [Concomitant]
     Active Substance: ALLOPURINOL
  3. NEXIUM [Suspect]
     Active Substance: ESOMEPRAZOLE MAGNESIUM
     Dosage: 40.0MG UNKNOWN
     Route: 048
     Dates: start: 20110506
  4. AMLODIPINE [Concomitant]
     Active Substance: AMLODIPINE BESYLATE
     Dosage: 10 MG HALF TABLET ONCE A DAY
  5. CALCITRIOL. [Concomitant]
     Active Substance: CALCITRIOL
  6. AMITRIPTYLINE [Concomitant]
     Active Substance: AMITRIPTYLINE
  7. LIPITOR [Concomitant]
     Active Substance: ATORVASTATIN CALCIUM
  8. ELAVIL [Concomitant]
     Active Substance: AMITRIPTYLINE HYDROCHLORIDE
  9. ISOSORBIDE. [Concomitant]
     Active Substance: ISOSORBIDE
  10. CARVEDILOL. [Concomitant]
     Active Substance: CARVEDILOL
  11. IMDUR [Concomitant]
     Active Substance: ISOSORBIDE MONONITRATE
  12. INSULIN [Concomitant]
     Active Substance: INSULIN NOS
  13. CARVEDILOL. [Concomitant]
     Active Substance: CARVEDILOL
  14. NEXIUM [Suspect]
     Active Substance: ESOMEPRAZOLE MAGNESIUM
     Route: 048
     Dates: start: 2005, end: 2015
  15. ALLOPURINOL. [Concomitant]
     Active Substance: ALLOPURINOL
  16. PLAVIX [Concomitant]
     Active Substance: CLOPIDOGREL BISULFATE

REACTIONS (4)
  - Nephrogenic anaemia [Unknown]
  - Chronic kidney disease [Not Recovered/Not Resolved]
  - End stage renal disease [Not Recovered/Not Resolved]
  - Acute kidney injury [Not Recovered/Not Resolved]

NARRATIVE: CASE EVENT DATE: 20140922
